FAERS Safety Report 7220772-0 (Version None)
Quarter: 2011Q1

REPORT INFORMATION
  Report Type: 
  Country: None (occurrence: None)
  Receive Date: 20110111
  Receipt Date: 20110105
  Transmission Date: 20110831
  Serious: Yes (Death, Other)
  Sender: FDA-Public Use
  Company Number: JP-BRISTOL-MYERS SQUIBB COMPANY-15474836

PATIENT
  Age: 42 Year
  Sex: Female

DRUGS (1)
  1. TAXOL [Suspect]
     Indication: GASTRIC CANCER
     Route: 041

REACTIONS (2)
  - NEOPLASM MALIGNANT [None]
  - CEREBRAL INFARCTION [None]
